FAERS Safety Report 25369849 (Version 1)
Quarter: 2025Q2

REPORT INFORMATION
  Report Type: Spontaneous
  Country: TW (occurrence: TW)
  Receive Date: 20250528
  Receipt Date: 20250528
  Transmission Date: 20250716
  Serious: Yes (Hospitalization, Other)
  Sender: BRISTOL-MYERS SQUIBB COMPANY
  Company Number: TW-BRISTOL-MYERS SQUIBB COMPANY-2025-073635

PATIENT
  Age: 68 Year
  Sex: Male
  Weight: 93.5 kg

DRUGS (2)
  1. OPDIVO [Suspect]
     Active Substance: NIVOLUMAB
     Indication: Bladder cancer
     Dosage: FREQ: EVERY 2 WEEKS
     Route: 042
     Dates: start: 20240705, end: 20241223
  2. PACLITAXEL [Suspect]
     Active Substance: PACLITAXEL
     Indication: Bladder cancer
     Dosage: FREQ: ONCE A WEEK
     Route: 042
     Dates: start: 20240816, end: 20250210

REACTIONS (9)
  - Generalised bullous fixed drug eruption [Recovering/Resolving]
  - Erythema multiforme [Recovering/Resolving]
  - Urinary tract infection enterococcal [Unknown]
  - Infusion related reaction [Unknown]
  - Chest discomfort [Unknown]
  - Oxygen saturation decreased [Unknown]
  - Staphylococcus test positive [Unknown]
  - Streptococcus test positive [Unknown]
  - Stevens-Johnson syndrome [Recovering/Resolving]

NARRATIVE: CASE EVENT DATE: 20240816
